FAERS Safety Report 8617069-0 (Version None)
Quarter: 2012Q3

REPORT INFORMATION
  Report Type: 
  Country: None (occurrence: None)
  Receive Date: 20120823
  Receipt Date: 20120815
  Transmission Date: 20120928
  Serious: No
  Sender: FDA-Public Use
  Company Number: US-009507513-1208USA007387

PATIENT

DRUGS (7)
  1. SUMATRIPTAN SUCCINATE (IMITREX) [Suspect]
     Dosage: 10 UNK, UNK
  2. MAXALT [Suspect]
     Indication: MIGRAINE
     Dosage: UNK
     Dates: start: 20020101, end: 20030101
  3. ASPIRIN [Concomitant]
     Indication: OSTEOARTHRITIS
     Dosage: 325 MG, PRN
  4. IBUPROFEN [Concomitant]
     Indication: OSTEOARTHRITIS
     Dosage: 800 MG, PRN
  5. SUMATRIPTAN SUCCINATE (IMITREX) [Suspect]
     Indication: MIGRAINE
     Dosage: 5 MG, PRN
  6. AMERGE [Concomitant]
     Indication: MIGRAINE
     Dosage: UNK
  7. ZOMIG [Concomitant]
     Indication: MIGRAINE
     Dosage: UNK

REACTIONS (1)
  - DRUG INEFFECTIVE [None]
